FAERS Safety Report 6841750-7 (Version None)
Quarter: 2010Q3

REPORT INFORMATION
  Report Type: 
  Country: None (occurrence: None)
  Receive Date: 20100714
  Receipt Date: 20070710
  Transmission Date: 20110219
  Serious: No
  Sender: FDA-Public Use
  Company Number: US-PFIZER INC-2007058836

PATIENT
  Sex: Male
  Weight: 81.8 kg

DRUGS (11)
  1. CHANTIX [Suspect]
     Indication: SMOKING CESSATION THERAPY
     Route: 048
     Dates: start: 20070501
  2. SPIRIVA [Concomitant]
  3. FORADIL [Concomitant]
  4. MOMETASONE FUROATE [Concomitant]
  5. XOPENEX [Concomitant]
  6. GUAIFENESIN [Concomitant]
     Route: 048
  7. MONTELUKAST SODIUM [Concomitant]
  8. CLARITIN [Concomitant]
     Route: 048
  9. ANTIINFLAMMATORY/ANTIRHEUMATIC PRODUCTS [Concomitant]
     Route: 048
  10. SIMVASTATIN [Concomitant]
     Indication: BLOOD CHOLESTEROL INCREASED
     Route: 048
  11. OTHER RESPIRATORY SYSTEM PRODUCTS [Concomitant]

REACTIONS (1)
  - NAUSEA [None]
